FAERS Safety Report 23130242 (Version 2)
Quarter: 2023Q4

REPORT INFORMATION
  Report Type: Spontaneous
  Country: CN (occurrence: CN)
  Receive Date: 20231031
  Receipt Date: 20231102
  Transmission Date: 20240110
  Serious: Yes (Other)
  Sender: FDA-Public Use
  Company Number: CN-FreseniusKabi-FK202317177

PATIENT
  Age: 79 Year
  Sex: Male
  Weight: 60 kg

DRUGS (4)
  1. EGG PHOSPHOLIPIDS\GLYCERIN\MEDIUM-CHAIN TRIGLYCERIDES\SOYBEAN OIL [Suspect]
     Active Substance: EGG PHOSPHOLIPIDS\GLYCERIN\MEDIUM-CHAIN TRIGLYCERIDES\SOYBEAN OIL
     Indication: Symptomatic treatment
     Route: 041
     Dates: start: 20230928, end: 20231006
  2. VITAMINS [Suspect]
     Active Substance: VITAMINS
     Indication: Symptomatic treatment
     Dosage: DOSE: 1 PCS
     Route: 041
     Dates: start: 20230928, end: 20231006
  3. AMINO ACIDS [Suspect]
     Active Substance: AMINO ACIDS
     Indication: Symptomatic treatment
     Route: 041
     Dates: start: 20230928, end: 20231006
  4. ELECTROLYTES NOS\MINERALS\SORBITOL [Concomitant]
     Active Substance: ELECTROLYTES NOS\MINERALS\SORBITOL
     Indication: Symptomatic treatment
     Route: 041
     Dates: start: 20230928, end: 20231006

REACTIONS (1)
  - Drug-induced liver injury [Recovering/Resolving]

NARRATIVE: CASE EVENT DATE: 20231005
